FAERS Safety Report 13939519 (Version 1)
Quarter: 2017Q3

REPORT INFORMATION
  Report Type: Spontaneous
  Country: US (occurrence: None)
  Receive Date: 20170906
  Receipt Date: 20170906
  Transmission Date: 20171127
  Serious: Yes (Other)
  Sender: FDA-Public Use
  Company Number: None

PATIENT
  Age: 14 Year
  Sex: Male
  Weight: 79 kg

DRUGS (1)
  1. (GENERIC) STRATTERA 25MG CAPS [Suspect]
     Active Substance: ATOMOXETINE HYDROCHLORIDE
     Indication: ATTENTION DEFICIT/HYPERACTIVITY DISORDER
     Dosage: 25 MG TWICE QAM ORAL
     Route: 048

REACTIONS (2)
  - Mood swings [None]
  - Aggression [None]

NARRATIVE: CASE EVENT DATE: 20170701
